FAERS Safety Report 4577686-4 (Version None)
Quarter: 2005Q1

REPORT INFORMATION
  Report Type: 
  Country: None (occurrence: None)
  Receive Date: 20050127
  Receipt Date: 20040824
  Transmission Date: 20050727
  Serious: No
  Sender: FDA-Public Use
  Company Number: USA040876459

PATIENT
  Age: 8 Year
  Sex: Female
  Weight: 29 kg

DRUGS (3)
  1. STRATTERA [Suspect]
     Dosage: 40 MG DAY
     Dates: start: 20040818
  2. MULTI-VITAMIN [Concomitant]
  3. VITAMIN B COMPLEX CAP [Concomitant]

REACTIONS (8)
  - DIZZINESS [None]
  - ERYTHEMA [None]
  - EXCORIATION [None]
  - PRURITUS [None]
  - SOMNOLENCE [None]
  - STOMACH DISCOMFORT [None]
  - URTICARIA [None]
  - VOMITING [None]
